FAERS Safety Report 10571952 (Version 1)
Quarter: 2014Q4

REPORT INFORMATION
  Report Type: Spontaneous
  Country: BR (occurrence: BR)
  Receive Date: 20141107
  Receipt Date: 20141107
  Transmission Date: 20150529
  Serious: Yes (Hospitalization, Other)
  Sender: FDA-Public Use
  Company Number: BR-ELI_LILLY_AND_COMPANY-BR201410010716

PATIENT
  Age: 69 Year
  Sex: Male
  Weight: 96 kg

DRUGS (12)
  1. CRESTOR [Concomitant]
     Active Substance: ROSUVASTATIN CALCIUM
     Indication: BLOOD CHOLESTEROL
     Dosage: 10 MG, UNKNOWN
     Route: 065
  2. HUMALOG MIX50/50 [Suspect]
     Active Substance: INSULIN LISPRO
     Dosage: 80 IU, EACH EVENING
     Route: 058
  3. SOMALGIN [Concomitant]
     Active Substance: ASPIRIN\DIHYDROXYALUMINUM AMINOACETATE ANHYDROUS\MAGNESIUM CARBONATE
     Dosage: 81 MG, UNKNOWN
     Route: 065
  4. PIOGLITAZONE                       /01460202/ [Concomitant]
     Active Substance: PIOGLITAZONE HYDROCHLORIDE
     Indication: BLOOD GLUCOSE
     Dosage: 30 MG, UNKNOWN
     Route: 065
  5. BENERVA [Concomitant]
     Active Substance: THIAMINE
     Dosage: 300 MG, UNKNOWN
     Route: 065
  6. ATENOLOL. [Concomitant]
     Active Substance: ATENOLOL
     Indication: BLOOD PRESSURE INCREASED
     Dosage: 25 MG, UNKNOWN
     Route: 065
  7. HUMALOG MIX50/50 [Suspect]
     Active Substance: INSULIN LISPRO
     Indication: DIABETES MELLITUS
     Dosage: 50 IU, EACH MORNING
     Route: 058
     Dates: start: 2011
  8. HUMALOG MIX50/50 [Suspect]
     Active Substance: INSULIN LISPRO
     Dosage: 20 IU, QD
     Route: 058
     Dates: start: 2011
  9. JANUVIA [Concomitant]
     Active Substance: SITAGLIPTIN PHOSPHATE
     Indication: BLOOD GLUCOSE
     Dosage: 100 MG, UNKNOWN
     Route: 065
  10. RAMIPRIL. [Concomitant]
     Active Substance: RAMIPRIL
     Indication: BLOOD PRESSURE INCREASED
     Dosage: 2.5 MG, UNKNOWN
     Route: 065
  11. HUMALOG MIX50/50 [Suspect]
     Active Substance: INSULIN LISPRO
     Dosage: 60 IU, EACH EVENING
     Route: 058
     Dates: start: 2011
  12. ZETIA [Concomitant]
     Active Substance: EZETIMIBE
     Indication: BLOOD CHOLESTEROL
     Dosage: 10 MG, UNKNOWN
     Route: 065

REACTIONS (13)
  - Vascular calcification [Recovering/Resolving]
  - Platelet count decreased [Unknown]
  - Chest pain [Recovered/Resolved]
  - Pallor [Unknown]
  - Dyspnoea [Unknown]
  - Vomiting [Recovered/Resolved]
  - Somnolence [Unknown]
  - Blood glucose increased [Recovered/Resolved]
  - Vascular occlusion [Recovering/Resolving]
  - Headache [Recovered/Resolved]
  - Dermatitis allergic [Recovered/Resolved]
  - Blood pressure decreased [Unknown]
  - Prosopagnosia [Unknown]

NARRATIVE: CASE EVENT DATE: 2013
